FAERS Safety Report 24124954 (Version 1)
Quarter: 2024Q3

REPORT INFORMATION
  Report Type: Spontaneous
  Country: US (occurrence: US)
  Receive Date: 20240723
  Receipt Date: 20240723
  Transmission Date: 20241017
  Serious: No
  Sender: GILEAD
  Company Number: US-GILEAD-2024-0681567

PATIENT
  Age: 57 Year
  Sex: Male

DRUGS (3)
  1. LENACAPAVIR [Suspect]
     Active Substance: LENACAPAVIR
     Indication: HIV infection
     Dosage: UNK
     Route: 065
     Dates: start: 20240717
  2. LENACAPAVIR [Suspect]
     Active Substance: LENACAPAVIR
     Dosage: UNK
     Route: 065
     Dates: start: 202401
  3. BENADRYL [Concomitant]
     Active Substance: DIPHENHYDRAMINE HYDROCHLORIDE

REACTIONS (4)
  - Injection site erythema [Not Recovered/Not Resolved]
  - Injection site nodule [Not Recovered/Not Resolved]
  - Injection site swelling [Not Recovered/Not Resolved]
  - Injection site pain [Not Recovered/Not Resolved]
